FAERS Safety Report 12416200 (Version 5)
Quarter: 2017Q2

REPORT INFORMATION
  Report Type: Spontaneous
  Country: PE (occurrence: PE)
  Receive Date: 20160530
  Receipt Date: 20170509
  Transmission Date: 20170830
  Serious: Yes (Other)
  Sender: FDA-Public Use
  Company Number: PE-PFIZER INC-2016271836

PATIENT
  Age: 77 Year
  Sex: Female

DRUGS (7)
  1. KRYTANTEK [Concomitant]
     Active Substance: BRIMONIDINE TARTRATE\DORZOLAMIDE HYDROCHLORIDE\TIMOLOL MALEATE
     Dosage: 2 GTT (1 DROP EACH EYE AT MORNING AND 1 DROP EACH EYE AT NIGHT), 2X/DAY
     Route: 047
  2. ARTRAIT 10 [Concomitant]
     Indication: ARTHRITIS
  3. XALATAN [Suspect]
     Active Substance: LATANOPROST
     Indication: GLAUCOMA
     Dosage: UNK, AT NIGHTS
  4. UNIAL [Concomitant]
     Active Substance: HYALURONATE SODIUM
     Dosage: UNK, EVERY 8 HOURS
  5. XALATAN [Suspect]
     Active Substance: LATANOPROST
     Dosage: 2 GTT (1 DROP EACH EYE PER DAY), 1X/DAY
     Route: 047
     Dates: start: 2014
  6. UNIAL [Concomitant]
     Active Substance: HYALURONATE SODIUM
     Dosage: UNK UNK, 2X/DAY
  7. KRYTANTEK [Concomitant]
     Active Substance: BRIMONIDINE TARTRATE\DORZOLAMIDE HYDROCHLORIDE\TIMOLOL MALEATE
     Dosage: UNK, 2X/DAY

REACTIONS (9)
  - Spinal disorder [Unknown]
  - Visual impairment [Unknown]
  - Osteoporosis [Unknown]
  - Rheumatoid arthritis [Unknown]
  - Osteoarthritis [Unknown]
  - Bronchitis [Recovering/Resolving]
  - Abasia [Unknown]
  - Myopia [Not Recovered/Not Resolved]
  - Urinary tract infection [Not Recovered/Not Resolved]

NARRATIVE: CASE EVENT DATE: 201512
